FAERS Safety Report 15568214 (Version 2)
Quarter: 2019Q1

REPORT INFORMATION
  Report Type: Report from Study
  Country: IN (occurrence: IN)
  Receive Date: 20181030
  Receipt Date: 20190226
  Transmission Date: 20190417
  Serious: Yes (Death)
  Sender: FDA-Public Use
  Company Number: IN-UCBSA-2018047309

PATIENT
  Age: 17 Year
  Sex: Female

DRUGS (5)
  1. ZONEGRAN [Suspect]
     Active Substance: ZONISAMIDE
     Indication: EPILEPSY
     Dosage: 50 MG, 2X/DAY (BID)
     Dates: end: 20181016
  2. LACOSAMIDE. [Suspect]
     Active Substance: LACOSAMIDE
     Indication: EPILEPSY
     Dosage: 100 MG, 2X/DAY (BID)
     Dates: end: 20181016
  3. LONAZEP [Suspect]
     Active Substance: CLONAZEPAM
     Indication: EPILEPSY
     Dosage: 100 MG, ONCE DAILY (QD)
     Dates: end: 20181016
  4. BRIVARACETAM [Suspect]
     Active Substance: BRIVARACETAM
     Indication: EPILEPSY
     Dosage: 100 MG DAILY, 2X/DAY (BID)
     Route: 048
     Dates: end: 20181016
  5. CLOBAZAM. [Suspect]
     Active Substance: CLOBAZAM
     Indication: EPILEPSY
     Dosage: 100 MG, 2X/DAY (BID)
     Dates: end: 20181016

REACTIONS (3)
  - Status epilepticus [Fatal]
  - Cardio-respiratory arrest [Fatal]
  - Loss of consciousness [None]
